FAERS Safety Report 9201511 (Version 5)
Quarter: 2013Q2

REPORT INFORMATION
  Report Type: Spontaneous
  Country: US (occurrence: US)
  Receive Date: 20130401
  Receipt Date: 20130618
  Transmission Date: 20140414
  Serious: Yes (Hospitalization, Other)
  Sender: FDA-Public Use
  Company Number: US-SANOFI-AVENTIS-2013SA032752

PATIENT
  Age: 32 Year
  Sex: Female
  Weight: 100 kg

DRUGS (18)
  1. AUBAGIO [Suspect]
     Indication: MULTIPLE SCLEROSIS
     Route: 048
     Dates: start: 20130307
  2. AUBAGIO [Suspect]
     Indication: MULTIPLE SCLEROSIS
     Route: 048
     Dates: start: 20130307
  3. ZANTAC [Concomitant]
  4. PAXIL [Concomitant]
  5. QUINIDINE [Concomitant]
  6. DEXTROMETHORPHAN [Concomitant]
  7. SEROQUEL [Concomitant]
  8. ACYCLOVIR [Concomitant]
  9. LAMICTAL [Concomitant]
  10. CONCERTA [Concomitant]
  11. METHYLPHENIDATE [Concomitant]
  12. MICARDIS [Concomitant]
     Indication: BLOOD PRESSURE
  13. OMEPRAZOLE [Concomitant]
     Indication: ABDOMINAL SYMPTOM
  14. RANITIDINE [Concomitant]
     Indication: ABDOMINAL DISCOMFORT
  15. MULTIVITAMINS [Concomitant]
  16. CALCIUM [Concomitant]
  17. VITAMIN D [Concomitant]
  18. CRANBERRY EXTRACT [Concomitant]

REACTIONS (15)
  - JC virus infection [Unknown]
  - Fall [Unknown]
  - Joint dislocation [Not Recovered/Not Resolved]
  - Gait disturbance [Not Recovered/Not Resolved]
  - Rash [Not Recovered/Not Resolved]
  - Fatigue [Unknown]
  - Cough [Unknown]
  - Nasopharyngitis [Unknown]
  - Dry mouth [Not Recovered/Not Resolved]
  - Abdominal discomfort [Recovered/Resolved]
  - Vomiting [Recovered/Resolved]
  - Nausea [Recovered/Resolved]
  - Decreased appetite [Unknown]
  - Alopecia [Not Recovered/Not Resolved]
  - Drug dose omission [Unknown]
